FAERS Safety Report 14661517 (Version 1)
Quarter: 2018Q1

REPORT INFORMATION
  Report Type: Report from Study
  Country: US (occurrence: US)
  Receive Date: 20180320
  Receipt Date: 20180320
  Transmission Date: 20180509
  Serious: Yes (Hospitalization)
  Sender: FDA-Public Use
  Company Number: US-ACTELION-A-NJ2018-169341

PATIENT
  Age: 12 Year
  Sex: Female

DRUGS (5)
  1. VIMPAT [Concomitant]
     Active Substance: LACOSAMIDE
     Dosage: 5 ML, BID
     Route: 048
     Dates: start: 20150119
  2. ZAVESCA [Suspect]
     Active Substance: MIGLUSTAT
     Indication: FABRY^S DISEASE
  3. ZAVESCA [Suspect]
     Active Substance: MIGLUSTAT
     Indication: GAUCHER^S DISEASE
     Dosage: 200 MG, EVERY MORNING AND EVENING
     Route: 048
     Dates: start: 20101206
  4. LAMOTRIGINE. [Concomitant]
     Active Substance: LAMOTRIGINE
     Dosage: 12.5 MG, BID
     Route: 048
     Dates: start: 20161104
  5. LEVETIRACETAM. [Concomitant]
     Active Substance: LEVETIRACETAM
     Dosage: 9 ML, BID
     Route: 048
     Dates: start: 20150119

REACTIONS (2)
  - Pneumonia [Unknown]
  - Influenza [Unknown]
